FAERS Safety Report 21031050 (Version 4)
Quarter: 2024Q4

REPORT INFORMATION
  Report Type: Spontaneous
  Country: US (occurrence: US)
  Receive Date: 20220701
  Receipt Date: 20241213
  Transmission Date: 20250115
  Serious: No
  Sender: BIOGEN
  Company Number: US-BIOGEN-2022BI01135925

PATIENT
  Sex: Female

DRUGS (1)
  1. SPINRAZA [Suspect]
     Active Substance: NUSINERSEN
     Indication: Product used for unknown indication
     Route: 050
     Dates: start: 20220614

REACTIONS (4)
  - Malaise [Unknown]
  - Nausea [Unknown]
  - Back pain [Unknown]
  - Post lumbar puncture syndrome [Not Recovered/Not Resolved]
